FAERS Safety Report 5901816-2 (Version None)
Quarter: 2008Q3

REPORT INFORMATION
  Report Type: 
  Country: None (occurrence: None)
  Receive Date: 20080925
  Receipt Date: 20080911
  Transmission Date: 20090109
  Serious: Yes (Other)
  Sender: FDA-Public Use
  Company Number: 080902-0000657

PATIENT
  Age: 2 Week
  Sex: Male

DRUGS (1)
  1. NEOPROFEN [Suspect]
     Indication: PATENT DUCTUS ARTERIOSUS
     Dosage: 10 MG/KG; ; IV, 5 MG/KG; ; IV
     Route: 042

REACTIONS (1)
  - VASCULAR RESISTANCE PULMONARY INCREASED [None]
